FAERS Safety Report 4634890-4 (Version None)
Quarter: 2005Q2

REPORT INFORMATION
  Report Type: 
  Country: None (occurrence: None)
  Receive Date: 20050412
  Receipt Date: 20050404
  Transmission Date: 20051028
  Serious: Yes (Other)
  Sender: FDA-Public Use
  Company Number: 2005049962

PATIENT
  Age: 24 Year
  Sex: Female

DRUGS (7)
  1. MEDROL [Suspect]
     Indication: NEPHROTIC SYNDROME
     Dosage: 4 MG, ORAL
     Route: 048
  2. ALDACTONE [Suspect]
     Indication: OEDEMA
     Dosage: 25-50 MG, ORAL
     Route: 048
     Dates: start: 20050224
  3. FUROSEMIDE [Concomitant]
  4. ALACEPRIL (ALACEPRIL) [Concomitant]
  5. MICORIBINE (MIZORIBINE) [Concomitant]
  6. ALBUMIN (HUMAN) [Concomitant]
  7. FAMOTIDINE [Concomitant]

REACTIONS (2)
  - BETA 2 MICROGLOBULIN URINE INCREASED [None]
  - RENAL IMPAIRMENT [None]
